FAERS Safety Report 5294649-4 (Version None)
Quarter: 2007Q2

REPORT INFORMATION
  Report Type: 
  Country: None (occurrence: None)
  Receive Date: 20070412
  Receipt Date: 20070405
  Transmission Date: 20071010
  Serious: Yes (Other)
  Sender: FDA-Public Use
  Company Number: US-AVENTIS-200712191US

PATIENT
  Age: 73 Year
  Sex: Female

DRUGS (9)
  1. LANTUS [Suspect]
     Dates: start: 20060901
  2. OPTICLIK GREY [Suspect]
     Dates: start: 20060901
  3. COREG [Concomitant]
     Dosage: DOSE: UNK
  4. ISOSORBIDE MONONITRATE [Concomitant]
     Dosage: DOSE: UNK
  5. ASPIRIN [Concomitant]
     Dosage: DOSE: UNK
  6. CAPTOPRIL [Concomitant]
     Dosage: DOSE: UNK
  7. VITAMINS NOS [Concomitant]
     Dosage: DOSE: UNK
  8. FUROSEMIDE [Concomitant]
     Dosage: DOSE: UNK
  9. MULTI-VITAMINS [Concomitant]
     Dosage: DOSE: UNK

REACTIONS (1)
  - VISION BLURRED [None]
